FAERS Safety Report 7055480-2 (Version None)
Quarter: 2010Q4

REPORT INFORMATION
  Report Type: 
  Country: None (occurrence: None)
  Receive Date: 20101019
  Receipt Date: 20101019
  Transmission Date: 20110411
  Serious: Yes (Other)
  Sender: FDA-Public Use
  Company Number: None

PATIENT
  Age: 35 Year
  Sex: Male
  Weight: 104.3273 kg

DRUGS (1)
  1. OXYCONTIN [Suspect]
     Indication: PAIN
     Dosage: 3 DAILY PO
     Route: 048
     Dates: start: 20100925, end: 20101018

REACTIONS (6)
  - DRUG EFFECT DECREASED [None]
  - DYSPEPSIA [None]
  - GASTRIC DISORDER [None]
  - HEADACHE [None]
  - PRODUCT FORMULATION ISSUE [None]
  - UNEVALUABLE EVENT [None]
